FAERS Safety Report 25951291 (Version 3)
Quarter: 2025Q4

REPORT INFORMATION
  Report Type: Report from Study
  Country: EU (occurrence: EU)
  Receive Date: 20251023
  Receipt Date: 20251207
  Transmission Date: 20260117
  Serious: Yes (Hospitalization)
  Sender: ABBVIE
  Company Number: EU-ABBVIE-6147187

PATIENT
  Age: 72 Year
  Sex: Female

DRUGS (3)
  1. FOSCARBIDOPA\FOSLEVODOPA [Suspect]
     Active Substance: FOSCARBIDOPA\FOSLEVODOPA
     Indication: Parkinson^s disease
     Dosage: SD: 0.60 ML; CRN: 0.40 ML/H; CR: 0.42 ML/H; CRH: 0.47 ML/H; ED: 0.10 ML
     Route: 058
     Dates: start: 20241022, end: 2025
  2. FOSCARBIDOPA\FOSLEVODOPA [Suspect]
     Active Substance: FOSCARBIDOPA\FOSLEVODOPA
     Dosage: SD: 0.60 ML; CRN: 0.40 ML/H; CR: 0.42 ML; CRH: 0.47 ML/H; ED: 0.10 ML
     Route: 058
     Dates: start: 2025, end: 2025
  3. FOSCARBIDOPA\FOSLEVODOPA [Suspect]
     Active Substance: FOSCARBIDOPA\FOSLEVODOPA
     Dosage: CRN 0.35 ML/H, CR 0.39 ML/H, CRH 0.42 ML/H, ED 0.10 ML
     Route: 058
     Dates: start: 2025

REACTIONS (11)
  - Forearm fracture [Recovering/Resolving]
  - Fall [Recovered/Resolved with Sequelae]
  - Infusion site pain [Not Recovered/Not Resolved]
  - Delirium [Recovered/Resolved]
  - Hallucination [Recovered/Resolved]
  - Hallucination [Recovered/Resolved]
  - Dyskinesia [Not Recovered/Not Resolved]
  - Hallucination [Not Recovered/Not Resolved]
  - Hypokinesia [Recovered/Resolved]
  - Cardiovascular disorder [Unknown]
  - Dizziness [Unknown]

NARRATIVE: CASE EVENT DATE: 20250101
